FAERS Safety Report 25788302 (Version 1)
Quarter: 2025Q3

REPORT INFORMATION
  Report Type: Spontaneous
  Country: US (occurrence: US)
  Receive Date: 20250910
  Receipt Date: 20250910
  Transmission Date: 20251021
  Serious: No
  Sender: SAPTALIS PHARMACEUTICALS LLC
  Company Number: US-Saptalis Pharmaceuticals LLC-2184243

PATIENT
  Age: 18 Year
  Sex: Male

DRUGS (1)
  1. TRIAMCINOLONE ACETONIDE [Suspect]
     Active Substance: TRIAMCINOLONE ACETONIDE

REACTIONS (4)
  - Acne [Unknown]
  - Psychogenic loss of appetite [Recovered/Resolved]
  - Pyrexia [Recovered/Resolved]
  - Skin swelling [Unknown]
